FAERS Safety Report 6245468-3 (Version None)
Quarter: 2009Q2

REPORT INFORMATION
  Report Type: 
  Country: None (occurrence: None)
  Receive Date: 20090625
  Receipt Date: 20090612
  Transmission Date: 20091009
  Serious: Yes (Hospitalization)
  Sender: FDA-Public Use
  Company Number: PHHY2009JP22670

PATIENT
  Sex: Male

DRUGS (6)
  1. FAMVIR [Suspect]
     Indication: HERPES ZOSTER
     Dosage: 1500 MG DAILY
     Route: 048
     Dates: start: 20090601, end: 20090601
  2. MUCOSTA [Concomitant]
     Dosage: 100MG
     Dates: start: 20090601, end: 20090601
  3. ZONISAMIDE [Concomitant]
     Dosage: UNK
     Dates: start: 20080601
  4. AMLODIPINE BESYLATE [Concomitant]
     Dosage: UNK
     Dates: start: 20031101
  5. IMIDAPRIL HYDROCHLORIDE [Concomitant]
     Dosage: UNK
     Dates: start: 20031101
  6. LOXONIN [Concomitant]
     Dosage: 60MG
     Dates: start: 20090601, end: 20090601

REACTIONS (2)
  - CONVULSION [None]
  - LOSS OF CONSCIOUSNESS [None]
